FAERS Safety Report 23952685 (Version 1)
Quarter: 2024Q2

REPORT INFORMATION
  Report Type: Spontaneous
  Country: US (occurrence: US)
  Receive Date: 20240607
  Receipt Date: 20240607
  Transmission Date: 20240715
  Serious: No
  Sender: FDA-Public Use
  Company Number: US-009507513-2405USA007554

PATIENT
  Sex: Female

DRUGS (1)
  1. KEYTRUDA [Suspect]
     Active Substance: PEMBROLIZUMAB
     Indication: Head and neck cancer
     Dosage: EVERY 3 WEEKS
     Route: 042
     Dates: start: 202208

REACTIONS (3)
  - Weight increased [Unknown]
  - Therapeutic response unexpected [Unknown]
  - Energy increased [Unknown]
